FAERS Safety Report 5138387-7 (Version None)
Quarter: 2006Q4

REPORT INFORMATION
  Report Type: 
  Country: None (occurrence: None)
  Receive Date: 20061030
  Receipt Date: 20060216
  Transmission Date: 20070319
  Serious: No
  Sender: FDA-Public Use
  Company Number: US-GLAXOSMITHKLINE-A0593994A

PATIENT
  Age: 90 Year
  Sex: Female

DRUGS (17)
  1. ADVAIR HFA [Suspect]
     Indication: CHRONIC OBSTRUCTIVE PULMONARY DISEASE
     Dosage: 1PUFF TWICE PER DAY
     Route: 055
     Dates: start: 20050501
  2. FOSAMAX [Concomitant]
  3. SYNTHROID [Concomitant]
  4. CALCIUM PLUS D [Concomitant]
  5. CALCIUM GLUCONATE [Concomitant]
  6. PROCANBID [Concomitant]
  7. NASONEX [Concomitant]
  8. IMDUR [Concomitant]
  9. LASIX [Concomitant]
  10. K-DUR 10 [Concomitant]
  11. CARDIZEM [Concomitant]
  12. NEXIUM [Concomitant]
  13. XOPENEX [Concomitant]
  14. SPIRIVA [Concomitant]
  15. XALATAN [Concomitant]
  16. AZOPT [Concomitant]
  17. DEPO-MEDROL [Concomitant]

REACTIONS (1)
  - VISUAL DISTURBANCE [None]
